FAERS Safety Report 14339521 (Version 1)
Quarter: 2017Q4

REPORT INFORMATION
  Report Type: Report from Study
  Country: US (occurrence: US)
  Receive Date: 20171230
  Receipt Date: 20171230
  Transmission Date: 20180321
  Serious: Yes (Death, Hospitalization, Other)
  Sender: FDA-Public Use
  Company Number: US-TORRENT-00004825

PATIENT
  Age: 53 Year
  Sex: Male

DRUGS (3)
  1. BUPROPION. [Suspect]
     Active Substance: BUPROPION
     Indication: PRODUCT USED FOR UNKNOWN INDICATION
     Dosage: 20  30 BUPROPION EXTENDED-RELEASE 300 MG TABS
     Route: 048
  2. VENLAFAXINE [Suspect]
     Active Substance: VENLAFAXINE HYDROCHLORIDE
     Indication: PRODUCT USED FOR UNKNOWN INDICATION
     Route: 048
  3. ALCOHOL. [Suspect]
     Active Substance: ALCOHOL
     Indication: PRODUCT USED FOR UNKNOWN INDICATION
     Route: 048

REACTIONS (11)
  - Ascites [Unknown]
  - Status epilepticus [Recovered/Resolved]
  - Nausea [Unknown]
  - Unresponsive to stimuli [Unknown]
  - Completed suicide [Fatal]
  - Hypotension [Unknown]
  - Overdose [Fatal]
  - Pulmonary oedema [Unknown]
  - Pleural effusion [Unknown]
  - Toxicity to various agents [Fatal]
  - Encephalopathy [Fatal]
